FAERS Safety Report 24571526 (Version 2)
Quarter: 2024Q4

REPORT INFORMATION
  Report Type: Spontaneous
  Country: CA (occurrence: CA)
  Receive Date: 20241101
  Receipt Date: 20241106
  Transmission Date: 20250115
  Serious: Yes (Other)
  Sender: AMGEN
  Company Number: CA-AMGEN-CANSP2024212015

PATIENT
  Sex: Male

DRUGS (1)
  1. XGEVA [Suspect]
     Active Substance: DENOSUMAB
     Indication: Chondroblastoma
     Dosage: 120 MILLIGRAM, Q4WK (EVERY 28 DAYS)
     Route: 058

REACTIONS (3)
  - Nasal septum disorder [Unknown]
  - Nasal turbinate abnormality [Unknown]
  - Off label use [Unknown]
